FAERS Safety Report 6833748-X (Version None)
Quarter: 2010Q3

REPORT INFORMATION
  Report Type: 
  Country: None (occurrence: None)
  Receive Date: 20100712
  Receipt Date: 20070515
  Transmission Date: 20110219
  Serious: Yes (Other)
  Sender: FDA-Public Use
  Company Number: US-PFIZER INC-2007026995

PATIENT
  Sex: Female
  Weight: 86.2 kg

DRUGS (4)
  1. CHANTIX [Suspect]
     Indication: SMOKING CESSATION THERAPY
     Dates: start: 20070201, end: 20070326
  2. NORTRIPTYLINE [Concomitant]
  3. LIBRIUM [Concomitant]
  4. BUSPAR [Concomitant]

REACTIONS (3)
  - CHROMATURIA [None]
  - DEPRESSION [None]
  - SUICIDAL IDEATION [None]
